FAERS Safety Report 20999371 (Version 1)
Quarter: 2022Q2

REPORT INFORMATION
  Report Type: Spontaneous
  Country: US (occurrence: US)
  Receive Date: 20220623
  Receipt Date: 20220623
  Transmission Date: 20220720
  Serious: Yes (Hospitalization)
  Sender: FDA-Public Use
  Company Number: US-BRISTOL-MYERS SQUIBB COMPANY-2022-057152

PATIENT
  Age: 58 Year
  Sex: Female
  Weight: 49.44 kg

DRUGS (5)
  1. POMALYST [Suspect]
     Active Substance: POMALIDOMIDE
     Indication: Plasma cell leukaemia
     Dosage: DOSE : 4MG;     FREQ : DAILY 21 DAYS ON 7 DAYS OFF
     Route: 048
     Dates: start: 20220526
  2. ASPIRIN [Concomitant]
     Active Substance: ASPIRIN
     Indication: Plasma cell leukaemia
  3. ACYCLOVIR [Concomitant]
     Active Substance: ACYCLOVIR
     Indication: Plasma cell leukaemia
  4. DEXAMETHASONE [Concomitant]
     Active Substance: DEXAMETHASONE
     Indication: Plasma cell leukaemia
  5. DILAUDID [Concomitant]
     Active Substance: HYDROMORPHONE HYDROCHLORIDE
     Indication: Plasma cell leukaemia

REACTIONS (2)
  - Chest pain [Unknown]
  - Confusional state [Unknown]

NARRATIVE: CASE EVENT DATE: 20220602
